FAERS Safety Report 6870816-0 (Version None)
Quarter: 2010Q3

REPORT INFORMATION
  Report Type: 
  Country: None (occurrence: None)
  Receive Date: 20100723
  Receipt Date: 20100712
  Transmission Date: 20110219
  Serious: Yes (Other)
  Sender: FDA-Public Use
  Company Number: JP-ASTRAZENECA-2010SE27016

PATIENT
  Age: 79 Year
  Sex: Male

DRUGS (9)
  1. MEROPEN [Suspect]
     Indication: PNEUMONITIS
     Dosage: SINGLE USE.
     Route: 042
     Dates: start: 20100401, end: 20100401
  2. FIRSTCIN [Suspect]
     Route: 042
     Dates: start: 20100401, end: 20100401
  3. WARFARIN SODIUM [Concomitant]
     Indication: ATRIAL FIBRILLATION
     Route: 048
  4. ARTIST [Concomitant]
     Indication: ATRIAL FIBRILLATION
     Route: 048
  5. NORVASC [Concomitant]
     Indication: HYPERTENSION
     Route: 048
  6. ASPENON [Concomitant]
     Indication: ATRIAL FIBRILLATION
     Route: 048
  7. DEPAS [Concomitant]
     Indication: INSOMNIA
     Route: 048
     Dates: end: 20100519
  8. MYSLEE [Concomitant]
     Indication: INSOMNIA
     Route: 048
  9. MEDICON [Concomitant]
     Indication: PNEUMONIA
     Route: 048

REACTIONS (1)
  - PNEUMONITIS [None]
